FAERS Safety Report 14034596 (Version 3)
Quarter: 2017Q4

REPORT INFORMATION
  Report Type: Report from Study
  Country: US (occurrence: US)
  Receive Date: 20171003
  Receipt Date: 20171205
  Transmission Date: 20180321
  Serious: Yes (Hospitalization)
  Sender: FDA-Public Use
  Company Number: US-EXELIXIS-CABO-17010390

PATIENT
  Age: 79 Year
  Sex: Male
  Weight: 104.31 kg

DRUGS (22)
  1. MORPHINE [Concomitant]
     Active Substance: MORPHINE
  2. ONDANSETRON [Concomitant]
     Active Substance: ONDANSETRON
  3. FERROUS SULFATE. [Concomitant]
     Active Substance: FERROUS SULFATE
  4. LANTUS [Concomitant]
     Active Substance: INSULIN GLARGINE
  5. OMEPRAZOLE. [Concomitant]
     Active Substance: OMEPRAZOLE
  6. CITALOPRAM [Concomitant]
     Active Substance: CITALOPRAM HYDROBROMIDE
  7. HUMALOG [Concomitant]
     Active Substance: INSULIN LISPRO
  8. DOXYCYCLINE. [Concomitant]
     Active Substance: DOXYCYCLINE
  9. VITAMIN D [Concomitant]
     Active Substance: CHOLECALCIFEROL
  10. CABOMETYX [Suspect]
     Active Substance: CABOZANTINIB S-MALATE
     Indication: RENAL CANCER
     Dosage: 60 MG, QD
     Route: 048
     Dates: start: 20160505
  11. CABOMETYX [Suspect]
     Active Substance: CABOZANTINIB S-MALATE
     Indication: HEPATIC NEOPLASM
     Dosage: 40 MG, QD
     Route: 048
     Dates: start: 20161019, end: 201709
  12. CABOMETYX [Suspect]
     Active Substance: CABOZANTINIB S-MALATE
     Dosage: 40 MG, QD
     Route: 048
  13. ASPIRIN. [Concomitant]
     Active Substance: ASPIRIN
  14. LANSOPRAZOLE. [Concomitant]
     Active Substance: LANSOPRAZOLE
  15. OXYCODONE [Concomitant]
     Active Substance: OXYCODONE
  16. MULTIVITAMIN [Concomitant]
     Active Substance: VITAMINS
  17. TAMSULOSIN [Concomitant]
     Active Substance: TAMSULOSIN
  18. HYDROCODONE BITARTRATE. [Concomitant]
     Active Substance: HYDROCODONE BITARTRATE
  19. AMLODIPINE [Concomitant]
     Active Substance: AMLODIPINE BESYLATE
  20. LEVOTHYROXINE. [Concomitant]
     Active Substance: LEVOTHYROXINE
  21. GABAPENTIN. [Concomitant]
     Active Substance: GABAPENTIN
  22. FISH OIL [Concomitant]
     Active Substance: FISH OIL

REACTIONS (8)
  - Musculoskeletal disorder [Unknown]
  - Weight decreased [Not Recovered/Not Resolved]
  - Decreased appetite [Unknown]
  - Loss of consciousness [Unknown]
  - Asthenia [Not Recovered/Not Resolved]
  - Nausea [Unknown]
  - Vomiting [Unknown]
  - Somnolence [Unknown]

NARRATIVE: CASE EVENT DATE: 20170905
